FAERS Safety Report 15960895 (Version 1)
Quarter: 2019Q1

REPORT INFORMATION
  Report Type: Spontaneous
  Country: US (occurrence: US)
  Receive Date: 20190122
  Receipt Date: 20190122
  Transmission Date: 20190417
  Serious: No
  Sender: FDA-Public Use
  Company Number: None

PATIENT
  Age: 43 Year
  Sex: Female

DRUGS (4)
  1. GABAPENTIN. [Concomitant]
     Active Substance: GABAPENTIN
  2. IBRANCE [Suspect]
     Active Substance: PALBOCICLIB
     Indication: NEOPLASM MALIGNANT
     Route: 048
     Dates: start: 20180328
  3. MORPHINE [Concomitant]
     Active Substance: MORPHINE
  4. FASLODEX [Concomitant]
     Active Substance: FULVESTRANT

REACTIONS (7)
  - Abdominal distension [None]
  - Eating disorder [None]
  - Therapy cessation [None]
  - Therapy non-responder [None]
  - Asthenia [None]
  - Constipation [None]
  - Nausea [None]

NARRATIVE: CASE EVENT DATE: 20181201
